FAERS Safety Report 4265885-0 (Version None)
Quarter: 2004Q1

REPORT INFORMATION
  Report Type: 
  Country: None (occurrence: None)
  Receive Date: 20040107
  Receipt Date: 20031230
  Transmission Date: 20041129
  Serious: Yes (Death)
  Sender: FDA-Public Use
  Company Number: CHPA2003US04988

PATIENT
  Age: 3 Year
  Sex: Male

DRUGS (2)
  1. TRIAMINIC-12 [Suspect]
     Dosage: ORAL
     Route: 048
  2. DIMETAPP [Suspect]

REACTIONS (1)
  - INTENTIONAL OVERDOSE [None]
